FAERS Safety Report 4340454-2 (Version None)
Quarter: 2004Q2

REPORT INFORMATION
  Report Type: 
  Country: None (occurrence: None)
  Receive Date: 20040414
  Receipt Date: 20040402
  Transmission Date: 20050107
  Serious: Yes (Death)
  Sender: FDA-Public Use
  Company Number: 163-20785-04010447

PATIENT
  Age: 69 Year
  Sex: Male

DRUGS (8)
  1. THALOMID [Suspect]
     Indication: AMYLOIDOSIS
     Dosage: 100 MG DAILY ORAL
     Route: 048
     Dates: start: 20040107, end: 20040115
  2. LASIX [Concomitant]
  3. ALLOPURINOL [Concomitant]
  4. LEXAPRO [Concomitant]
  5. BICITRA (SHOHL'S SOLUTION) [Concomitant]
  6. ATENOLOL [Concomitant]
  7. PROTONIX (RANTOPRAZOLE) [Concomitant]
  8. LIPITOR [Concomitant]

REACTIONS (5)
  - AMYLOIDOSIS [None]
  - DISEASE PROGRESSION [None]
  - MULTIPLE MYELOMA [None]
  - NAUSEA [None]
  - RASH GENERALISED [None]
